FAERS Safety Report 11474026 (Version 1)
Quarter: 2015Q3

REPORT INFORMATION
  Report Type: Spontaneous
  Country: US (occurrence: US)
  Receive Date: 20150908
  Receipt Date: 20150908
  Transmission Date: 20151125
  Serious: No
  Sender: FDA-Public Use
  Company Number: US-JAZZ-2013-US-003573

PATIENT
  Age: 77 Year
  Sex: Male

DRUGS (2)
  1. XYREM [Suspect]
     Active Substance: SODIUM OXYBATE
     Dosage: 3.0 G, BID
     Route: 048
     Dates: start: 201206
  2. XYREM [Suspect]
     Active Substance: SODIUM OXYBATE
     Indication: SLEEP DISORDER
     Dosage: 2.25 G, BID
     Route: 048
     Dates: start: 201112

REACTIONS (4)
  - Transurethral prostatectomy [Recovered/Resolved]
  - Off label use [Unknown]
  - Prostate infection [Recovered/Resolved]
  - Prostatomegaly [Recovered/Resolved]

NARRATIVE: CASE EVENT DATE: 201310
